FAERS Safety Report 9493173 (Version 2)
Quarter: 2013Q3

REPORT INFORMATION
  Report Type: Spontaneous
  Country: NL (occurrence: NL)
  Receive Date: 20130902
  Receipt Date: 20130902
  Transmission Date: 20140515
  Serious: Yes (Other)
  Sender: FDA-Public Use
  Company Number: NL-BRISTOL-MYERS SQUIBB COMPANY-17362054

PATIENT
  Age: 69 Year
  Sex: Male

DRUGS (3)
  1. YERVOY [Suspect]
     Indication: METASTATIC MALIGNANT MELANOMA
     Dosage: LAST DOSE: 24JAN2013
     Dates: start: 20121122
  2. AUGMENTIN [Suspect]
     Indication: SINUSITIS
     Dates: start: 20121128, end: 20121209
  3. OMEPRAZOLE [Concomitant]

REACTIONS (3)
  - Pruritus [Unknown]
  - Blister [Recovered/Resolved]
  - Sinusitis [Recovered/Resolved]
